FAERS Safety Report 9879453 (Version 2)
Quarter: 2014Q1

REPORT INFORMATION
  Report Type: Spontaneous
  Country: US (occurrence: US)
  Receive Date: 20140206
  Receipt Date: 20140213
  Transmission Date: 20141002
  Serious: Yes (Death, Other)
  Sender: FDA-Public Use
  Company Number: US-009507513-1401USA014691

PATIENT
  Age: 55 Year
  Sex: Male

DRUGS (6)
  1. TEMODAR [Suspect]
     Indication: GLIOBLASTOMA
     Dosage: UNK
     Route: 048
     Dates: end: 201310
  2. POTASSIUM (UNSPECIFIED) [Concomitant]
  3. VITAMINS (UNSPECIFIED) [Concomitant]
  4. CRESTOR [Concomitant]
  5. PRILOSEC [Concomitant]
  6. AVASTIN (SIMVASTATIN) [Concomitant]

REACTIONS (1)
  - Glioblastoma [Fatal]
